FAERS Safety Report 17369152 (Version 1)
Quarter: 2020Q1

REPORT INFORMATION
  Report Type: Spontaneous
  Country: US (occurrence: US)
  Receive Date: 20190906
  Receipt Date: 20190906
  Transmission Date: 20200409
  Serious: No
  Sender: FDA-Public Use
  Company Number: None

PATIENT
  Age: 33 Year
  Sex: Female

DRUGS (4)
  1. ARIPIPRAZOLE 10 MG PO QDAY [Concomitant]
  2. VAPING THC OIL [Suspect]
     Active Substance: .DELTA.8-TETRAHYDROCANNABINOL\DEVICE\HERBALS
  3. ESCITALOPRAM 20 MG PO QDAY [Concomitant]
  4. MULTIVITAMIN [Concomitant]
     Active Substance: VITAMINS

REACTIONS (6)
  - Pain in extremity [None]
  - Cough [None]
  - Traumatic lung injury [None]
  - Pneumonia lipoid [None]
  - Pyrexia [None]
  - Hypoxia [None]
